FAERS Safety Report 14045600 (Version 1)
Quarter: 2017Q4

REPORT INFORMATION
  Report Type: Spontaneous
  Country: US (occurrence: US)
  Receive Date: 20171005
  Receipt Date: 20171005
  Transmission Date: 20180321
  Serious: Yes (Life-Threatening, Other)
  Sender: FDA-Public Use
  Company Number: US-009507513-1710USA001510

PATIENT
  Age: 5 Year
  Sex: Female

DRUGS (6)
  1. VINCRISTINE [Suspect]
     Active Substance: VINCRISTINE
     Dosage: 1 DOSE
  2. GLOBULIN, IMMUNE [Suspect]
     Active Substance: HUMAN IMMUNOGLOBULIN G
     Dosage: 1000 MG/KG; 2 DOSES
     Route: 042
  3. DEXAMETHASONE. [Suspect]
     Active Substance: DEXAMETHASONE
     Dosage: 9 ML, QD
  4. AZITHROMYCIN ANHYDROUS. [Suspect]
     Active Substance: AZITHROMYCIN ANHYDROUS
     Dosage: 5 MG/KG, MONDAY, WEDNESDAY, AND FRIDAY
  5. METHOTREXATE. [Suspect]
     Active Substance: METHOTREXATE
     Dosage: 20 MG/M2, QW
  6. MERCAPTOPURINE. [Suspect]
     Active Substance: MERCAPTOPURINE
     Dosage: 75 MG/M2, QD

REACTIONS (1)
  - Drug ineffective [Unknown]
